FAERS Safety Report 18544885 (Version 1)
Quarter: 2020Q4

REPORT INFORMATION
  Report Type: Spontaneous
  Country: US (occurrence: US)
  Receive Date: 20201125
  Receipt Date: 20201125
  Transmission Date: 20210114
  Serious: Yes (Hospitalization)
  Sender: FDA-Public Use
  Company Number: None

PATIENT
  Sex: Female
  Weight: 69.1 kg

DRUGS (1)
  1. ARIMIDEX [Suspect]
     Active Substance: ANASTROZOLE
     Dates: end: 20191212

REACTIONS (4)
  - Anaemia [None]
  - Cellulitis [None]
  - Osteoarthritis [None]
  - Haemoglobin decreased [None]

NARRATIVE: CASE EVENT DATE: 20191211
